FAERS Safety Report 8251139-4 (Version None)
Quarter: 2012Q1

REPORT INFORMATION
  Report Type: 
  Country: None (occurrence: None)
  Receive Date: 20120328
  Receipt Date: 20120315
  Transmission Date: 20120608
  Serious: Yes (Other)
  Sender: FDA-Public Use
  Company Number: 2012MA003657

PATIENT
  Age: 52 Year
  Sex: Male

DRUGS (1)
  1. PACLITAXEL [Suspect]
     Indication: SARCOMA
     Dosage: IV
     Route: 042
     Dates: start: 20120105, end: 20120105

REACTIONS (4)
  - BACK PAIN [None]
  - HYPERHIDROSIS [None]
  - FEELING HOT [None]
  - DIZZINESS [None]
